FAERS Safety Report 5535530-2 (Version None)
Quarter: 2007Q4

REPORT INFORMATION
  Report Type: 
  Country: None (occurrence: None)
  Receive Date: 20071206
  Receipt Date: 20071129
  Transmission Date: 20080405
  Serious: Yes (Death, Life-Threatening)
  Sender: FDA-Public Use
  Company Number: FR-AVENTIS-200713339FR

PATIENT
  Age: 91 Year
  Sex: Female
  Weight: 49 kg

DRUGS (2)
  1. LOVENOX [Suspect]
     Route: 058
     Dates: start: 20070918, end: 20070926
  2. PREVISCAN                          /00789001/ [Suspect]
     Route: 048
     Dates: start: 20070918, end: 20070924

REACTIONS (4)
  - ANAEMIA [None]
  - DRUG INTERACTION [None]
  - INTRA-ABDOMINAL HAEMATOMA [None]
  - SHOCK HAEMORRHAGIC [None]
